FAERS Safety Report 23997958 (Version 1)
Quarter: 2024Q2

REPORT INFORMATION
  Report Type: Spontaneous
  Country: FR (occurrence: FR)
  Receive Date: 20240621
  Receipt Date: 20240621
  Transmission Date: 20240716
  Serious: Yes (Disabling)
  Sender: FDA-Public Use
  Company Number: FR-CELLTRION INC.-2024FR014769

PATIENT

DRUGS (2)
  1. RITUXIMAB [Suspect]
     Active Substance: RITUXIMAB
     Indication: Leukaemia
     Dosage: 375 MG/M2 EVERY 1 WEEK, 4 CYCLES TOTAL
     Route: 042
     Dates: start: 20200708, end: 20200729
  2. CLADRIBINE [Suspect]
     Active Substance: CLADRIBINE
     Indication: Leukaemia
     Dosage: 0.1 MG/KG EVERY 1 DAY
     Route: 042
     Dates: start: 20200824, end: 20200828

REACTIONS (2)
  - Sensorimotor disorder [Not Recovered/Not Resolved]
  - Musculoskeletal pain [Not Recovered/Not Resolved]

NARRATIVE: CASE EVENT DATE: 20200701
